FAERS Safety Report 10621686 (Version 3)
Quarter: 2015Q1

REPORT INFORMATION
  Report Type: Report from Study
  Country: CA (occurrence: CA)
  Receive Date: 20141203
  Receipt Date: 20150108
  Transmission Date: 20150720
  Serious: Yes (Hospitalization)
  Sender: FDA-Public Use
  Company Number: PHHY2014CA154522

PATIENT
  Age: 51 Year
  Sex: Male

DRUGS (1)
  1. SANDOSTATIN [Suspect]
     Active Substance: OCTREOTIDE ACETATE
     Indication: ANAL FISTULA
     Dosage: 200 UG, TID
     Route: 058
     Dates: start: 201411, end: 201412

REACTIONS (4)
  - Diarrhoea [Unknown]
  - Drug ineffective [Unknown]
  - Hypotension [Unknown]
  - Product use issue [Unknown]

NARRATIVE: CASE EVENT DATE: 200411
